FAERS Safety Report 24086253 (Version 1)
Quarter: 2024Q3

REPORT INFORMATION
  Report Type: Spontaneous
  Country: CN (occurrence: CN)
  Receive Date: 20240712
  Receipt Date: 20240712
  Transmission Date: 20241016
  Serious: Yes (Hospitalization)
  Sender: NOVARTIS
  Company Number: CN-002147023-NVSC2024CN144293

PATIENT
  Age: 35 Year
  Sex: Female
  Weight: 46 kg

DRUGS (2)
  1. CYCLOSPORINE [Suspect]
     Active Substance: CYCLOSPORINE
     Indication: Acute lymphocytic leukaemia
     Dosage: 250 MG, QD
     Route: 041
     Dates: start: 20240525, end: 20240705
  2. MYFORTIC [Suspect]
     Active Substance: MYCOPHENOLATE SODIUM
     Indication: Acute lymphocytic leukaemia
     Dosage: 360 MG, BID
     Route: 048
     Dates: start: 20240525, end: 20240708

REACTIONS (1)
  - Blood triglycerides increased [Recovering/Resolving]

NARRATIVE: CASE EVENT DATE: 20240623
